FAERS Safety Report 15412686 (Version 1)
Quarter: 2018Q3

REPORT INFORMATION
  Report Type: Spontaneous
  Country: US (occurrence: US)
  Receive Date: 20180917
  Receipt Date: 20180917
  Transmission Date: 20181010
  Serious: No
  Sender: FDA-Public Use
  Company Number: None

PATIENT
  Sex: Female

DRUGS (1)
  1. SPRYCEL [Suspect]
     Active Substance: DASATINIB
     Route: 048
     Dates: start: 20180127

REACTIONS (7)
  - Dizziness [None]
  - Headache [None]
  - Dyspnoea [None]
  - Diarrhoea [None]
  - Drug dose omission [None]
  - Constipation [None]
  - Palpitations [None]
